FAERS Safety Report 6802914-1 (Version None)
Quarter: 2010Q2

REPORT INFORMATION
  Report Type: 
  Country: None (occurrence: None)
  Receive Date: 20100628
  Receipt Date: 20100615
  Transmission Date: 20101027
  Serious: Yes (Other)
  Sender: FDA-Public Use
  Company Number: PHHY2010IN40204

PATIENT
  Age: 27 Year
  Sex: Male

DRUGS (2)
  1. CARBAMAZEPINE [Suspect]
     Indication: MANIA
     Dosage: UNK
  2. LITHIUM [Suspect]
     Indication: MANIA
     Dosage: UNK,UNK

REACTIONS (3)
  - DYSKINESIA [None]
  - MOOD SWINGS [None]
  - TREMOR [None]
